FAERS Safety Report 18414951 (Version 1)
Quarter: 2020Q4

REPORT INFORMATION
  Report Type: Spontaneous
  Country: US (occurrence: US)
  Receive Date: 20201021
  Receipt Date: 20201021
  Transmission Date: 20210114
  Serious: Yes (Death)
  Sender: FDA-Public Use
  Company Number: None

PATIENT
  Age: 64 Year
  Sex: Male

DRUGS (2)
  1. ROYAL HONEY ETUMAX [Suspect]
     Active Substance: HERBALS
  2. TADALAFIL. [Suspect]
     Active Substance: TADALAFIL

REACTIONS (2)
  - Suspected counterfeit product [None]
  - Cardiac arrest [None]

NARRATIVE: CASE EVENT DATE: 20201015
